FAERS Safety Report 6701102-7 (Version None)
Quarter: 2010Q2

REPORT INFORMATION
  Report Type: 
  Country: None (occurrence: None)
  Receive Date: 20100428
  Receipt Date: 20100428
  Transmission Date: 20101027
  Serious: Yes (Hospitalization)
  Sender: FDA-Public Use
  Company Number: None

PATIENT
  Age: 66 Year
  Sex: Male
  Weight: 150 kg

DRUGS (3)
  1. LISINOPRIL [Suspect]
     Indication: DIABETES MELLITUS
     Dosage: 50 MG EVERY DAY PO
     Route: 048
     Dates: start: 20020227, end: 20100312
  2. LISINOPRIL [Suspect]
     Indication: HYPERTENSION
     Dosage: 50 MG EVERY DAY PO
     Route: 048
     Dates: start: 20020227, end: 20100312
  3. FUROSEMIDE [Suspect]
     Indication: HYPERTENSION
     Dosage: 40 MG EVERY DAY PO
     Route: 048
     Dates: start: 20020227, end: 20100312

REACTIONS (3)
  - HYPERKALAEMIA [None]
  - RENAL FAILURE ACUTE [None]
  - URINE SODIUM INCREASED [None]
